FAERS Safety Report 4753359-X (Version None)
Quarter: 2005Q3

REPORT INFORMATION
  Report Type: 
  Country: None (occurrence: None)
  Receive Date: 20050823
  Receipt Date: 20050805
  Transmission Date: 20060218
  Serious: Yes (Hospitalization, Other)
  Sender: FDA-Public Use
  Company Number: US_0412109203

PATIENT
  Age: 44 Year
  Sex: Female
  Weight: 74 kg

DRUGS (13)
  1. HUMALOG [Suspect]
  2. HUMULIN-HUMAN NPH INSULIN (RDNA) (HUMAN INSUL (RD [Suspect]
  3. MAVIK [Concomitant]
  4. ENOXIN (ENOXACIN) [Concomitant]
  5. VERELAN (VERAPAMIL HYDROCHLORIDE) [Concomitant]
  6. NOVOLOG [Concomitant]
  7. ZOLOFT [Concomitant]
  8. ATENOLOL [Concomitant]
  9. DIGOXIN [Concomitant]
  10. ACETYLSALICYLIC ACID SRT [Concomitant]
  11. ACE INHIBITOR [Concomitant]
  12. LANTUS [Concomitant]
  13. LIPITOR [Concomitant]

REACTIONS (41)
  - AGITATION [None]
  - ANTEROGRADE AMNESIA [None]
  - AUTONOMIC NEUROPATHY [None]
  - BLOOD GLUCOSE INCREASED [None]
  - CERVICAL MYELOPATHY [None]
  - CHEST PAIN [None]
  - CLAUSTROPHOBIA [None]
  - CONSTIPATION [None]
  - CONVERSION DISORDER [None]
  - DIABETES MELLITUS INADEQUATE CONTROL [None]
  - DIARRHOEA [None]
  - DIZZINESS [None]
  - EXCORIATION [None]
  - FATIGUE [None]
  - FEELING HOT [None]
  - GLYCOSYLATED HAEMOGLOBIN INCREASED [None]
  - HEAD INJURY [None]
  - HYPOGLYCAEMIA [None]
  - IMPAIRED DRIVING ABILITY [None]
  - IMPAIRED HEALING [None]
  - INFUSION SITE BRUISING [None]
  - INSOMNIA [None]
  - INTERVERTEBRAL DISC PROTRUSION [None]
  - LOSS OF CONSCIOUSNESS [None]
  - NERVE COMPRESSION [None]
  - NEUROGLYCOPENIA [None]
  - NEUROPATHY PERIPHERAL [None]
  - PANIC ATTACK [None]
  - PARAESTHESIA [None]
  - REFLEXES ABNORMAL [None]
  - REFUSAL OF TREATMENT BY PATIENT [None]
  - RETROGRADE AMNESIA [None]
  - ROAD TRAFFIC ACCIDENT [None]
  - SKIN ULCER [None]
  - SPINAL OSTEOARTHRITIS [None]
  - SYNCOPE [None]
  - SYNCOPE VASOVAGAL [None]
  - TACHYCARDIA [None]
  - TREMOR [None]
  - UPPER RESPIRATORY TRACT INFECTION [None]
  - VISUAL DISTURBANCE [None]
